FAERS Safety Report 8355423-5 (Version None)
Quarter: 2012Q2

REPORT INFORMATION
  Report Type: 
  Country: None (occurrence: None)
  Receive Date: 20120511
  Receipt Date: 20120504
  Transmission Date: 20120825
  Serious: Yes (Hospitalization)
  Sender: FDA-Public Use
  Company Number: US-TEVA-336821USA

PATIENT
  Age: 46 Year
  Sex: Female

DRUGS (7)
  1. ACETYLSALICYLIC ACID SRT [Concomitant]
     Indication: PROPHYLAXIS
     Route: 048
  2. FUROSEMIDE [Concomitant]
     Dosage: 40 MG ONCE DAILY
     Route: 048
  3. BECLOMETHASONE DIPROPIONATE [Suspect]
     Indication: ASTHMA
     Dosage: 1 PUFF EVERY 6 HOURS
     Route: 055
     Dates: start: 20100101
  4. TELMISARTAN [Suspect]
     Indication: HYPERTENSION
     Dosage: 80/25 MG ONCE DAILY
     Route: 048
     Dates: start: 20090101, end: 20120415
  5. CYCLOBENZAPRINE HCL [Concomitant]
     Indication: MUSCLE SPASMS
     Dosage: 10 MG AS NEEDED
     Route: 048
     Dates: start: 20100101
  6. HYDROCODONE BITARTRATE [Concomitant]
     Indication: NECK PAIN
     Route: 048
  7. PROAIR HFA [Suspect]
     Indication: ASTHMA
     Dosage: 2 PUFFS, 2 IN 1 DAY
     Route: 055
     Dates: start: 20100101

REACTIONS (3)
  - PNEUMONIA [None]
  - DYSPNOEA [None]
  - HYPERTENSION [None]
